FAERS Safety Report 4281698-8 (Version None)
Quarter: 2004Q1

REPORT INFORMATION
  Report Type: 
  Country: None (occurrence: None)
  Receive Date: 20040120
  Receipt Date: 20030311
  Transmission Date: 20041129
  Serious: Yes (Life-Threatening)
  Sender: FDA-Public Use
  Company Number: BDI-004890

PATIENT
  Age: 43 Year
  Sex: Female
  Weight: 95 kg

DRUGS (4)
  1. PROHANCE [Suspect]
     Indication: BACK PAIN
     Dosage: 20 MGL ONCE IV
     Route: 042
     Dates: start: 20030203, end: 20030203
  2. PROHANCE [Suspect]
     Indication: NUCLEAR MAGNETIC RESONANCE IMAGING
     Dosage: 20 MGL ONCE IV
     Route: 042
     Dates: start: 20030203, end: 20030203
  3. PROHANCE [Suspect]
     Indication: PAIN IN EXTREMITY
     Dosage: 20 MGL ONCE IV
     Route: 042
     Dates: start: 20030203, end: 20030203
  4. EPINEPHRINE [Concomitant]

REACTIONS (3)
  - SWOLLEN TONGUE [None]
  - THROAT TIGHTNESS [None]
  - VOMITING [None]
